FAERS Safety Report 5276437-8 (Version None)
Quarter: 2007Q1

REPORT INFORMATION
  Report Type: 
  Country: None (occurrence: None)
  Receive Date: 20061213
  Receipt Date: 20040614
  Transmission Date: 20070707
  Serious: Yes (Hospitalization)
  Sender: FDA-Public Use
  Company Number: 2004AC00143

PATIENT
  Age: 19 Year
  Sex: Male

DRUGS (3)
  1. QUETIAPINE FUMARATE [Suspect]
     Dosage: 12000 MG PO
     Route: 048
  2. ACETAMINOPHEN [Concomitant]
  3. VALPROIC ACID [Concomitant]

REACTIONS (2)
  - INTENTIONAL OVERDOSE [None]
  - RHABDOMYOLYSIS [None]
